FAERS Safety Report 15770871 (Version 1)
Quarter: 2018Q4

REPORT INFORMATION
  Report Type: Spontaneous
  Country: US (occurrence: US)
  Receive Date: 20181228
  Receipt Date: 20181228
  Transmission Date: 20190205
  Serious: Yes (Other)
  Sender: FDA-Public Use
  Company Number: US-JNJFOC-20181227115

PATIENT
  Sex: Male
  Weight: 72.1 kg

DRUGS (7)
  1. DOXYCYCLINE. [Concomitant]
     Active Substance: DOXYCYCLINE
     Route: 065
  2. FLUCONAZOLE. [Concomitant]
     Active Substance: FLUCONAZOLE
     Route: 065
  3. ZITHROMAX [Concomitant]
     Active Substance: AZITHROMYCIN DIHYDRATE
     Route: 065
  4. VEDOLIZUMAB [Suspect]
     Active Substance: VEDOLIZUMAB
     Indication: CROHN^S DISEASE
     Route: 042
     Dates: start: 201802, end: 201805
  5. TEMAZEPAM. [Concomitant]
     Active Substance: TEMAZEPAM
     Route: 065
  6. LEVAQUIN [Suspect]
     Active Substance: LEVOFLOXACIN
     Indication: PNEUMONIA
     Route: 065
  7. CEFDINIR. [Concomitant]
     Active Substance: CEFDINIR
     Indication: PNEUMONIA
     Route: 065

REACTIONS (3)
  - Coccidioidomycosis [Recovering/Resolving]
  - Crohn^s disease [Recovering/Resolving]
  - Anaphylactic reaction [Recovering/Resolving]
